FAERS Safety Report 19212016 (Version 2)
Quarter: 2021Q2

REPORT INFORMATION
  Report Type: Spontaneous
  Country: CH (occurrence: CH)
  Receive Date: 20210504
  Receipt Date: 20210513
  Transmission Date: 20210717
  Serious: Yes (Life-Threatening, Hospitalization, Other)
  Sender: FDA-Public Use
  Company Number: CH-009507513-2105CHE000222

PATIENT
  Sex: Female
  Weight: 57 kg

DRUGS (4)
  1. IBEROGAST [Concomitant]
     Active Substance: HERBALS
     Dosage: DROPS; GUTTAE (GTT); 0?20?20?0
  2. KEYTRUDA [Suspect]
     Active Substance: PEMBROLIZUMAB
     Indication: BLADDER TRANSITIONAL CELL CARCINOMA
     Dosage: 200 MILLIGRAM, Q3W; 9 CYCLES
     Route: 042
     Dates: start: 20200814, end: 20210219
  3. CONCOR [Concomitant]
     Active Substance: BISOPROLOL FUMARATE
     Dosage: 1?0?0?0
  4. HYDROCHLOROTHIAZIDE (+) VALSARTAN [Concomitant]
     Active Substance: HYDROCHLOROTHIAZIDE\VALSARTAN
     Dosage: STRENGTH: 160/25 (UNIT NOT PROVIDED); 1?0?0?0

REACTIONS (2)
  - Immune-mediated hyperthyroidism [Recovered/Resolved]
  - Diabetes mellitus [Not Recovered/Not Resolved]

NARRATIVE: CASE EVENT DATE: 20200904
